FAERS Safety Report 15731383 (Version 1)
Quarter: 2018Q4

REPORT INFORMATION
  Report Type: Spontaneous
  Country: US (occurrence: US)
  Receive Date: 20181217
  Receipt Date: 20181217
  Transmission Date: 20190205
  Serious: Yes (Other)
  Sender: FDA-Public Use
  Company Number: US-SHIRE-US201848352

PATIENT
  Sex: Female

DRUGS (1)
  1. GATTEX [Suspect]
     Active Substance: TEDUGLUTIDE\WATER
     Indication: SHORT-BOWEL SYNDROME
     Dosage: 0.2600 (UNIT UNKNOWN), DAILY
     Route: 065
     Dates: start: 20130423

REACTIONS (2)
  - Crohn^s disease [Unknown]
  - Gastrointestinal wall thickening [Unknown]
